FAERS Safety Report 9004010 (Version 2)
Quarter: 2013Q2

REPORT INFORMATION
  Report Type: Report from Study
  Country: DE (occurrence: DE)
  Receive Date: 20130108
  Receipt Date: 20130417
  Transmission Date: 20140414
  Serious: Yes (Hospitalization)
  Sender: FDA-Public Use
  Company Number: DE-B.I. PHARMACEUTICALS,INC./RIDGEFIELD-2013-DE-00032DE

PATIENT
  Age: 82 Year
  Sex: Female
  Weight: 80 kg

DRUGS (11)
  1. PRADAXA [Suspect]
     Indication: ATRIAL FIBRILLATION
     Dosage: 300 MG
     Route: 048
  2. PRADAXA [Suspect]
     Dosage: 220 NR
     Dates: start: 20130103
  3. BISOPROLOL 5 [Concomitant]
     Dosage: 10 MG
     Route: 048
  4. SIMVASTATIN 20 [Concomitant]
     Dosage: 20 MG
     Route: 048
  5. GLIBENCLAMID 3.5 [Concomitant]
     Dosage: 3.5 MG
     Route: 048
  6. ALLOPURINOL 300 [Concomitant]
     Dosage: 300 MG
     Route: 048
  7. LERCANIDIPIN 20 [Concomitant]
     Dosage: 20 MG
     Route: 048
  8. NIFEDIPIN [Concomitant]
     Route: 048
  9. VALSARTAN 160/25 [Concomitant]
     Dosage: STRENGHT: 160/25;  DAILY DOSE 1-0-0
     Route: 048
  10. TORASEMID 10 [Concomitant]
     Dosage: 5 MG
     Route: 048
  11. ISDN 600 [Concomitant]
     Dosage: 600 MG
     Route: 048

REACTIONS (2)
  - Pericardial effusion [Not Recovered/Not Resolved]
  - Cardiac failure [Not Recovered/Not Resolved]
